FAERS Safety Report 18076658 (Version 1)
Quarter: 2020Q3

REPORT INFORMATION
  Report Type: Report from Study
  Country: FR (occurrence: FR)
  Receive Date: 20200727
  Receipt Date: 20200727
  Transmission Date: 20201103
  Serious: Yes (Other)
  Sender: FDA-Public Use
  Company Number: FR-MYLANLABS-2020M1066475

PATIENT
  Age: 68 Year
  Sex: Female

DRUGS (3)
  1. DEXAMETHASONE. [Suspect]
     Active Substance: DEXAMETHASONE
     Indication: PLASMA CELL MYELOMA
     Dosage: 2 WEEKS/CYCLE
     Route: 065
     Dates: end: 20180409
  2. THALIDOMIDE [Suspect]
     Active Substance: THALIDOMIDE
     Indication: PLASMA CELL MYELOMA
     Dosage: 3 WEEKS/CYCLE
     Route: 065
     Dates: end: 20180409
  3. VELCADE [Suspect]
     Active Substance: BORTEZOMIB
     Indication: PLASMA CELL MYELOMA
     Dosage: 2 WEEKS/CYCLE
     Route: 065
     Dates: end: 20180409

REACTIONS (3)
  - Intentional product misuse [Unknown]
  - Off label use [Unknown]
  - Renal failure [Recovered/Resolved]
